FAERS Safety Report 25489063 (Version 1)
Quarter: 2025Q2

REPORT INFORMATION
  Report Type: Spontaneous
  Country: ZA (occurrence: ZA)
  Receive Date: 20250627
  Receipt Date: 20250627
  Transmission Date: 20250717
  Serious: Yes (Death, Other)
  Sender: AMGEN
  Company Number: ZA-AMGEN-ZAFSP2025125744

PATIENT

DRUGS (3)
  1. FILGRASTIM [Suspect]
     Active Substance: FILGRASTIM
     Indication: Haematopoietic stem cell mobilisation
     Dosage: 5 MICROGRAM/KILOGRAM, BID FOR 5 DAYS
     Route: 065
  2. ETOPOSIDE [Concomitant]
     Active Substance: ETOPOSIDE
     Indication: Haematopoietic stem cell mobilisation
     Route: 040
  3. MELPHALAN [Concomitant]
     Active Substance: MELPHALAN
     Indication: Plasma cell myeloma
     Route: 040

REACTIONS (1)
  - Plasma cell myeloma recurrent [Fatal]
